FAERS Safety Report 16829950 (Version 1)
Quarter: 2019Q3

REPORT INFORMATION
  Report Type: Spontaneous
  Country: US (occurrence: US)
  Receive Date: 20190919
  Receipt Date: 20190919
  Transmission Date: 20191005
  Serious: Yes (Other)
  Sender: FDA-Public Use
  Company Number: US-ALLERGAN-1937672US

PATIENT

DRUGS (3)
  1. URSODEOXYCHOLIC ACID UNK [Suspect]
     Active Substance: URSODIOL
     Dosage: DOSE REDUCED BY 50%
     Route: 048
  2. URSODEOXYCHOLIC ACID UNK [Suspect]
     Active Substance: URSODIOL
     Indication: CHOLANGITIS SCLEROSING
     Dosage: }= 20 MG/KG/DAY IN 2 DIVIDED DOSES
     Route: 048
  3. URSODEOXYCHOLIC ACID UNK [Suspect]
     Active Substance: URSODIOL
     Dosage: DOSE GREATER THAN 13 MG/KG/DAY OR 600 MG/DAY
     Route: 048

REACTIONS (3)
  - Cholangitis sclerosing [Recovered/Resolved]
  - Off label use [Unknown]
  - Hepatic enzyme increased [Unknown]
